FAERS Safety Report 6628502-8 (Version None)
Quarter: 2010Q1

REPORT INFORMATION
  Report Type: 
  Country: None (occurrence: None)
  Receive Date: 20100311
  Receipt Date: 20100304
  Transmission Date: 20100710
  Serious: Yes (Hospitalization)
  Sender: FDA-Public Use
  Company Number: US-SANOFI-AVENTIS-2010SA013245

PATIENT
  Age: 77 Year
  Sex: Female
  Weight: 69.39 kg

DRUGS (10)
  1. PLAVIX [Suspect]
     Route: 048
     Dates: start: 20090901
  2. PLAVIX [Suspect]
     Route: 048
     Dates: start: 20090901
  3. PLAVIX [Suspect]
     Route: 048
     Dates: start: 20090901
  4. LOPRESSOR [Suspect]
  5. PRINIVIL [Suspect]
  6. COREG [Concomitant]
  7. IRON [Concomitant]
  8. DIURETICS [Concomitant]
  9. ASPIRIN [Concomitant]
     Dates: start: 20090901
  10. DIOVAN [Concomitant]

REACTIONS (10)
  - ARRHYTHMIA [None]
  - CONFUSIONAL STATE [None]
  - CONSTIPATION [None]
  - DIARRHOEA [None]
  - DIZZINESS [None]
  - DYSPNOEA [None]
  - GASTROINTESTINAL MOTILITY DISORDER [None]
  - PYREXIA [None]
  - RASH GENERALISED [None]
  - RASH PRURITIC [None]
